FAERS Safety Report 7031697-8 (Version None)
Quarter: 2010Q4

REPORT INFORMATION
  Report Type: 
  Country: None (occurrence: None)
  Receive Date: 20101007
  Receipt Date: 20100924
  Transmission Date: 20110411
  Serious: Yes (Hospitalization)
  Sender: FDA-Public Use
  Company Number: US-BIOGENIDEC-2010BI023056

PATIENT
  Age: 59 Year
  Sex: Female

DRUGS (12)
  1. TYSABRI [Suspect]
     Indication: MULTIPLE SCLEROSIS
     Route: 042
     Dates: start: 20070201
  2. NORVASC [Concomitant]
     Indication: HYPERTENSION
  3. CELEXA [Concomitant]
  4. CLONAZEPAM [Concomitant]
     Route: 048
  5. GABAPENTIN [Concomitant]
  6. SYNTHROID [Concomitant]
     Indication: HYPOTHYROIDISM
  7. LISINOPRIL [Concomitant]
     Indication: HYPERTENSION
  8. ZYPREXA [Concomitant]
  9. OXYCONTIN [Concomitant]
     Indication: PAIN
  10. ZOCOR [Concomitant]
     Route: 048
  11. TYLENOL [Concomitant]
     Indication: PAIN
  12. OXYCODONE [Concomitant]

REACTIONS (6)
  - DIARRHOEA [None]
  - ESCHERICHIA URINARY TRACT INFECTION [None]
  - MULTIPLE SCLEROSIS RELAPSE [None]
  - NORMOCHROMIC NORMOCYTIC ANAEMIA [None]
  - RENAL DISORDER [None]
  - SEPTIC SHOCK [None]
